FAERS Safety Report 9339120 (Version 1)
Quarter: 2013Q2

REPORT INFORMATION
  Report Type: Spontaneous
  Country: US (occurrence: None)
  Receive Date: 20130606
  Receipt Date: 20130606
  Transmission Date: 20140414
  Serious: Yes (Other)
  Sender: FDA-Public Use
  Company Number: None

PATIENT
  Age: 29 Year
  Sex: Female

DRUGS (1)
  1. PANTOPRAZOLE 40 MG POWDER FOR SOLUTION FOR INJECTION [Suspect]

REACTIONS (1)
  - Clostridium difficile colitis [None]
